FAERS Safety Report 17375231 (Version 3)
Quarter: 2024Q4

REPORT INFORMATION
  Report Type: Spontaneous
  Country: FR (occurrence: FR)
  Receive Date: 20200205
  Receipt Date: 20241202
  Transmission Date: 20250114
  Serious: Yes (Other)
  Sender: NOVARTIS
  Company Number: None

PATIENT
  Age: 58 Year
  Sex: Female

DRUGS (1)
  1. TERBINAFINE [Suspect]
     Active Substance: TERBINAFINE\TERBINAFINE HYDROCHLORIDE
     Indication: Onychomycosis
     Dosage: 250 MG PER DAY
     Route: 048
     Dates: start: 201807

REACTIONS (8)
  - Photosensitivity reaction [Recovered/Resolved]
  - Febrile infection [Unknown]
  - Rash [Recovered/Resolved]
  - Body temperature increased [Unknown]
  - Headache [Unknown]
  - Malaise [Unknown]
  - Photodermatosis [Unknown]
  - Pyrexia [Unknown]
